FAERS Safety Report 6216644-0 (Version None)
Quarter: 2009Q2

REPORT INFORMATION
  Report Type: 
  Country: None (occurrence: None)
  Receive Date: 20090605
  Receipt Date: 20090529
  Transmission Date: 20091009
  Serious: Yes (Death)
  Sender: FDA-Public Use
  Company Number: EG-ROCHE-478053

PATIENT
  Age: 26 Year
  Sex: Male

DRUGS (2)
  1. TAMIFLU [Suspect]
     Indication: AVIAN INFLUENZA
     Route: 065
     Dates: start: 20061221
  2. AMANTADINE HCL [Concomitant]
     Dates: start: 20061220

REACTIONS (1)
  - PATHOGEN RESISTANCE [None]
